FAERS Safety Report 16197675 (Version 1)
Quarter: 2019Q2

REPORT INFORMATION
  Report Type: Spontaneous
  Country: US (occurrence: US)
  Receive Date: 20190414
  Receipt Date: 20190414
  Transmission Date: 20190711
  Serious: Yes (Hospitalization)
  Sender: FDA-Public Use
  Company Number: None

PATIENT
  Age: 82 Year
  Sex: Female

DRUGS (4)
  1. FORTEO [Suspect]
     Active Substance: TERIPARATIDE
     Indication: SENILE OSTEOPOROSIS
     Route: 058
     Dates: start: 20180910
  2. ASPIRIN. [Concomitant]
     Active Substance: ASPIRIN
     Dates: start: 20181026
  3. PRAMIPEXOLE 0.125MG [Concomitant]
     Active Substance: PRAMIPEXOLE
     Dates: start: 20180920
  4. RITALIN [Concomitant]
     Active Substance: METHYLPHENIDATE HYDROCHLORIDE
     Dates: start: 20181026

REACTIONS (2)
  - Carpal tunnel syndrome [None]
  - Therapy cessation [None]

NARRATIVE: CASE EVENT DATE: 20190411
